FAERS Safety Report 7803413-0 (Version None)
Quarter: 2011Q4

REPORT INFORMATION
  Report Type: 
  Country: None (occurrence: None)
  Receive Date: 20111007
  Receipt Date: 20100623
  Transmission Date: 20120403
  Serious: No
  Sender: FDA-Public Use
  Company Number: US-BAYER-201026137NA

PATIENT
  Age: 64 Year
  Sex: Male

DRUGS (3)
  1. HYDRALAZINE HCL [Concomitant]
  2. CRESTOR [Concomitant]
  3. LEVITRA [Suspect]
     Dosage: 20 MG, TWICE WEEKLY
     Route: 048
     Dates: start: 20100616

REACTIONS (1)
  - DRUG INEFFECTIVE [None]
